FAERS Safety Report 20634746 (Version 4)
Quarter: 2022Q2

REPORT INFORMATION
  Report Type: Spontaneous
  Country: JP (occurrence: JP)
  Receive Date: 20220325
  Receipt Date: 20220514
  Transmission Date: 20220721
  Serious: Yes (Death, Hospitalization)
  Sender: FDA-Public Use
  Company Number: JP-JNJFOC-20220350597

PATIENT
  Age: 81 Year
  Sex: Male

DRUGS (2)
  1. ERLEADA [Suspect]
     Active Substance: APALUTAMIDE
     Indication: Prostate cancer
     Route: 048
     Dates: start: 20211224, end: 20220314
  2. DEGARELIX [Concomitant]
     Active Substance: DEGARELIX
     Indication: Asthma
     Dosage: DOSE UNKNOWN
     Route: 065
     Dates: start: 20211002

REACTIONS (4)
  - Pneumonia aspiration [Fatal]
  - Stomatitis [Unknown]
  - Decreased appetite [Unknown]
  - Infection [Unknown]

NARRATIVE: CASE EVENT DATE: 20220314
